FAERS Safety Report 9407388 (Version 1)
Quarter: 2013Q3

REPORT INFORMATION
  Report Type: Spontaneous
  Country: FR (occurrence: FR)
  Receive Date: 20130718
  Receipt Date: 20130718
  Transmission Date: 20140515
  Serious: Yes (Other)
  Sender: FDA-Public Use
  Company Number: FR-B.I. PHARMACEUTICALS,INC./RIDGEFIELD-2013-BI-21134YA

PATIENT
  Sex: Male

DRUGS (4)
  1. TAMSULOSINA [Suspect]
     Indication: BENIGN PROSTATIC HYPERPLASIA
     Dosage: DAILY DOSE: 1DF
     Route: 048
  2. TAMSULOSINA [Suspect]
     Dosage: DAILY DOSE: 1 DF TWICE A DAY
     Route: 048
  3. PROPRANOLOL [Concomitant]
     Indication: HYPERTENSION
  4. PERINDOPRIL [Concomitant]
     Indication: HYPERTENSION

REACTIONS (5)
  - Myocardial infarction [Recovered/Resolved]
  - Hypotension [Not Recovered/Not Resolved]
  - Drug effect decreased [Unknown]
  - Intentional drug misuse [Unknown]
  - Overdose [Unknown]
